FAERS Safety Report 8305419-4 (Version None)
Quarter: 2012Q2

REPORT INFORMATION
  Report Type: 
  Country: None (occurrence: None)
  Receive Date: 20120418
  Receipt Date: 20120410
  Transmission Date: 20120825
  Serious: Yes (Life-Threatening, Hospitalization, Other)
  Sender: FDA-Public Use
  Company Number: ADR-2012-00706

PATIENT
  Age: 55 Year
  Sex: Female

DRUGS (1)
  1. BACLOFEN [Suspect]

REACTIONS (5)
  - MENINGITIS [None]
  - MUSCLE SPASMS [None]
  - CARDIO-RESPIRATORY ARREST [None]
  - WHITE BLOOD CELL COUNT INCREASED [None]
  - GENERAL PHYSICAL HEALTH DETERIORATION [None]
